FAERS Safety Report 8616048 (Version 2)
Quarter: 2012Q4

REPORT INFORMATION
  Report Type: 
  Country: US (occurrence: US)
  Receive Date: 20120614
  Receipt Date: 20120927
  Transmission Date: 20130627
  Serious: No
  Sender: FDA-Public Use
  Company Number: US-AMGEN-USASP2012023924

PATIENT
  Age: 75 Year
  Sex: Female
  Weight: 63.49 kg

DRUGS (5)
  1. PROLIA [Suspect]
     Indication: OSTEOPOROSIS POSTMENOPAUSAL
     Dosage: 60 mg, q6mo
     Route: 058
     Dates: start: 20110826, end: 20120229
  2. PROLIA [Suspect]
     Dosage: 60 mg, q6mo
     Route: 058
     Dates: start: 20120229, end: 20120229
  3. VITAMIN D /00107901/ [Concomitant]
     Indication: OSTEOPOROSIS
     Dosage: UNK UNK, qwk
  4. LIPITOR [Concomitant]
     Indication: HYPERLIPIDAEMIA
     Dosage: 20 mg, qd
     Dates: start: 201202
  5. CALCIUM [Concomitant]

REACTIONS (7)
  - Pain [Not Recovered/Not Resolved]
  - Discomfort [Unknown]
  - Depression [Unknown]
  - Psoriasis [Unknown]
  - Back pain [Not Recovered/Not Resolved]
  - Asthenia [Unknown]
  - Pain in extremity [Not Recovered/Not Resolved]
